FAERS Safety Report 8490576-X (Version None)
Quarter: 2012Q3

REPORT INFORMATION
  Report Type: 
  Country: None (occurrence: None)
  Receive Date: 20120705
  Receipt Date: 20120628
  Transmission Date: 20120928
  Serious: Yes (Hospitalization, Other)
  Sender: FDA-Public Use
  Company Number: CA-ABBOTT-12P-028-0938983-00

PATIENT
  Sex: Female
  Weight: 48.124 kg

DRUGS (10)
  1. HUMIRA [Suspect]
     Route: 058
     Dates: start: 20120530, end: 20120615
  2. LYRICA [Concomitant]
     Indication: EYELID PAIN
     Route: 048
     Dates: start: 20120519, end: 20120519
  3. HUMIRA [Suspect]
     Route: 058
     Dates: start: 20120313, end: 20120313
  4. VITAMIN D [Concomitant]
     Indication: VITAMIN SUPPLEMENTATION
     Route: 048
     Dates: start: 20120329
  5. NICOTINE [Concomitant]
     Indication: SMOKING CESSATION THERAPY
     Dates: start: 20120519
  6. MESALAMINE [Concomitant]
     Indication: PRODUCT USED FOR UNKNOWN INDICATION
  7. HUMIRA [Suspect]
     Indication: CROHN'S DISEASE
     Dosage: 160 MG ON 25-APR-2012 AND 80 MG ON 13-MAY-2012
     Route: 058
     Dates: start: 20120425, end: 20120425
  8. PREDNISONE [Suspect]
     Indication: CROHN'S DISEASE
     Route: 048
     Dates: start: 20120329, end: 20120517
  9. ACYCLOVIR [Suspect]
     Indication: PRODUCT USED FOR UNKNOWN INDICATION
  10. CALCIUM [Concomitant]
     Indication: MINERAL SUPPLEMENTATION
     Route: 048
     Dates: start: 20120329

REACTIONS (9)
  - EYELID OEDEMA [None]
  - VOMITING [None]
  - HERPES ZOSTER [None]
  - HERPES ZOSTER OPHTHALMIC [None]
  - NAUSEA [None]
  - PAIN [None]
  - HERPES SIMPLEX [None]
  - PRURITUS [None]
  - SKIN BURNING SENSATION [None]
